FAERS Safety Report 4947073-5 (Version None)
Quarter: 2006Q1

REPORT INFORMATION
  Report Type: 
  Country: None (occurrence: None)
  Receive Date: 20060317
  Receipt Date: 20050805
  Transmission Date: 20060701
  Serious: Yes (Death)
  Sender: FDA-Public Use
  Company Number: FR-BRISTOL-MYERS SQUIBB COMPANY-13089677

PATIENT
  Age: 78 Year
  Sex: Female

DRUGS (7)
  1. FUNGIZONE [Suspect]
     Indication: ORAL CANDIDIASIS
     Route: 048
     Dates: start: 20050805, end: 20050801
  2. SINTROM [Concomitant]
  3. DISCOTRINE [Concomitant]
  4. LEVOTHYROX [Concomitant]
  5. LASILIX [Concomitant]
  6. DAFALGAN [Concomitant]
  7. POTASSIUM [Concomitant]

REACTIONS (2)
  - GINGIVAL BLEEDING [None]
  - MYOCARDIAL INFARCTION [None]
